FAERS Safety Report 4283101-0 (Version None)
Quarter: 2004Q1

REPORT INFORMATION
  Report Type: 
  Country: None (occurrence: None)
  Receive Date: 20040129
  Receipt Date: 20040121
  Transmission Date: 20041129
  Serious: Yes (Other)
  Sender: FDA-Public Use
  Company Number: 200400891

PATIENT
  Age: 2 Year
  Sex: Female

DRUGS (2)
  1. CHILDREN'S MOTRIN [Suspect]
     Indication: PYREXIA
     Dosage: PO
     Route: 048
     Dates: start: 20040120
  2. CHILDRENS TYLENOL PRODUCT UNKNOWN [Suspect]
     Indication: PYREXIA
     Dosage: PO
     Route: 048
     Dates: start: 20040120

REACTIONS (2)
  - FEBRILE CONVULSION [None]
  - MEDICATION ERROR [None]
